FAERS Safety Report 9158864 (Version 2)
Quarter: 2013Q1

REPORT INFORMATION
  Report Type: Spontaneous
  Country: GB (occurrence: GB)
  Receive Date: 20130313
  Receipt Date: 20130325
  Transmission Date: 20140127
  Serious: Yes (Other)
  Sender: FDA-Public Use
  Company Number: GB-RANBAXY-2013R1-65905

PATIENT
  Age: 27 Year
  Sex: Female

DRUGS (4)
  1. SERTRALINE [Suspect]
     Indication: ANXIETY DISORDER
     Dosage: 50 MG, QD
     Route: 065
     Dates: start: 20120212, end: 20120215
  2. SERTRALINE [Suspect]
     Indication: DEPRESSION
  3. SERTRALINE [Suspect]
     Indication: ANXIETY DISORDER
     Dosage: UNK
     Route: 065
  4. SERTRALINE [Suspect]
     Indication: DEPRESSION

REACTIONS (4)
  - Loss of consciousness [Recovered/Resolved]
  - Crying [Unknown]
  - Fall [Recovered/Resolved]
  - Loss of consciousness [Recovered/Resolved]
